FAERS Safety Report 7138488-8 (Version None)
Quarter: 2010Q4

REPORT INFORMATION
  Report Type: 
  Country: None (occurrence: None)
  Receive Date: 20101104
  Receipt Date: 20101020
  Transmission Date: 20110411
  Serious: Yes (Hospitalization)
  Sender: FDA-Public Use
  Company Number: 20101020CINRY1661

PATIENT
  Age: 31 Year
  Sex: Female

DRUGS (10)
  1. CINRYZE (CL ESTERASE INHIBITOR (HUMAN)) (500 UNIT, INJECTION FOR INFUS [Suspect]
     Indication: HEREDITARY ANGIOEDEMA
     Dosage: 1000 UNIT, 2 IN 1 WK),  INTRAVENOUS, 1500 UNIT, 2 IN 1 WK, INTRAVENOUS
     Route: 040
     Dates: start: 20090101, end: 20100501
  2. CINRYZE (CL ESTERASE INHIBITOR (HUMAN)) (500 UNIT, INJECTION FOR INFUS [Suspect]
     Indication: PROPHYLAXIS
     Dosage: 1000 UNIT, 2 IN 1 WK),  INTRAVENOUS, 1500 UNIT, 2 IN 1 WK, INTRAVENOUS
     Route: 040
     Dates: start: 20090101, end: 20100501
  3. CINRYZE (CL ESTERASE INHIBITOR (HUMAN)) (500 UNIT, INJECTION FOR INFUS [Suspect]
     Indication: HEREDITARY ANGIOEDEMA
     Dosage: 1000 UNIT, 2 IN 1 WK),  INTRAVENOUS, 1500 UNIT, 2 IN 1 WK, INTRAVENOUS
     Route: 040
     Dates: start: 20100501
  4. CINRYZE (CL ESTERASE INHIBITOR (HUMAN)) (500 UNIT, INJECTION FOR INFUS [Suspect]
     Indication: PROPHYLAXIS
     Dosage: 1000 UNIT, 2 IN 1 WK),  INTRAVENOUS, 1500 UNIT, 2 IN 1 WK, INTRAVENOUS
     Route: 040
     Dates: start: 20100501
  5. NEXIUM [Concomitant]
  6. FIORICET (AXOTAL) [Concomitant]
  7. PERCOCET [Concomitant]
  8. UNSPECIFIED ANTIBIOTIC (CHLORAMPHENICOL) [Concomitant]
  9. SYMBICORT [Concomitant]
  10. ALBUTEROL [Concomitant]

REACTIONS (27)
  - ABDOMINAL PAIN UPPER [None]
  - APTYALISM [None]
  - ASTHENIA [None]
  - CONDITION AGGRAVATED [None]
  - COUGH [None]
  - DECREASED APPETITE [None]
  - DENTAL CARIES [None]
  - DRUG DOSE OMISSION [None]
  - DYSPNOEA [None]
  - FATIGUE [None]
  - HEADACHE [None]
  - HEREDITARY ANGIOEDEMA [None]
  - HYPERSENSITIVITY [None]
  - INCREASED TENDENCY TO BRUISE [None]
  - MEMORY IMPAIRMENT [None]
  - MIGRAINE [None]
  - NAUSEA [None]
  - PHONOPHOBIA [None]
  - PHOTOPHOBIA [None]
  - PLEURAL EFFUSION [None]
  - PRESYNCOPE [None]
  - RASH [None]
  - SKIN DISORDER [None]
  - STRESS [None]
  - SYNCOPE [None]
  - VISION BLURRED [None]
  - VOMITING [None]
